FAERS Safety Report 21378634 (Version 1)
Quarter: 2022Q3

REPORT INFORMATION
  Report Type: Report from Study
  Country: US (occurrence: US)
  Receive Date: 20220927
  Receipt Date: 20220927
  Transmission Date: 20221026
  Serious: Yes (Hospitalization, Other)
  Sender: FDA-Public Use
  Company Number: US-ABBVIE-4130138

PATIENT
  Sex: Female

DRUGS (2)
  1. MAVYRET [Suspect]
     Active Substance: GLECAPREVIR\PIBRENTASVIR
     Indication: Hepatitis C
     Dosage: TIME INTERVAL: 0.33333333 DAYS: 100MG-400MG
     Route: 048
     Dates: start: 20220812, end: 2022
  2. MAVYRET [Suspect]
     Active Substance: GLECAPREVIR\PIBRENTASVIR
     Indication: Hepatitis C
     Route: 048
     Dates: start: 202209

REACTIONS (6)
  - Urinary tract infection [Recovered/Resolved]
  - Cardiac disorder [Unknown]
  - Bowel movement irregularity [Unknown]
  - Inflammation [Unknown]
  - Dehydration [Unknown]
  - Myocardial injury [Unknown]

NARRATIVE: CASE EVENT DATE: 20220101
